FAERS Safety Report 8390489-8 (Version None)
Quarter: 2012Q2

REPORT INFORMATION
  Report Type: 
  Country: None (occurrence: None)
  Receive Date: 20120529
  Receipt Date: 20120517
  Transmission Date: 20120825
  Serious: Yes (Life-Threatening, Hospitalization)
  Sender: FDA-Public Use
  Company Number: PL-JNJFOC-20120516017

PATIENT
  Sex: Female
  Weight: 58 kg

DRUGS (3)
  1. METHYLPREDNISOLONUM [Concomitant]
     Indication: RHEUMATOID ARTHRITIS
     Route: 048
  2. MELOXICAM [Concomitant]
     Indication: RHEUMATOID ARTHRITIS
     Route: 048
  3. REMICADE [Suspect]
     Indication: RHEUMATOID ARTHRITIS
     Route: 042
     Dates: start: 20120510, end: 20120510

REACTIONS (6)
  - SOFT TISSUE DISORDER [None]
  - CRYING [None]
  - SOMNOLENCE [None]
  - BRONCHOSPASM [None]
  - DYSPNOEA [None]
  - FLUSHING [None]
